FAERS Safety Report 16233730 (Version 1)
Quarter: 2019Q2

REPORT INFORMATION
  Report Type: Spontaneous
  Country: US (occurrence: US)
  Receive Date: 20190423
  Receipt Date: 20190423
  Transmission Date: 20190711
  Serious: Yes (Life-Threatening, Disabling)
  Sender: FDA-Public Use
  Company Number: None

PATIENT
  Age: 25 Year
  Sex: Female
  Weight: 74.25 kg

DRUGS (1)
  1. ISIBLOOM [Suspect]
     Active Substance: DESOGESTREL\ETHINYL ESTRADIOL
     Indication: CONTRACEPTION
     Dosage: ?          QUANTITY:1 TABLET(S);?
     Route: 048

REACTIONS (4)
  - Blood pressure increased [None]
  - Heart rate irregular [None]
  - Refusal of treatment by patient [None]
  - Cardiac disorder [None]

NARRATIVE: CASE EVENT DATE: 20181002
